FAERS Safety Report 5229850-9 (Version None)
Quarter: 2007Q1

REPORT INFORMATION
  Report Type: 
  Country: None (occurrence: None)
  Receive Date: 20070206
  Receipt Date: 20061109
  Transmission Date: 20070707
  Serious: No
  Sender: FDA-Public Use
  Company Number: US-GLAXOSMITHKLINE-A0626921A

PATIENT
  Sex: Female

DRUGS (2)
  1. PAROXETINE HCL [Suspect]
     Indication: DRUG USE FOR UNKNOWN INDICATION
     Dosage: 20MG UNKNOWN
     Route: 048
  2. LEVOXYL [Suspect]
     Indication: THYROID DISORDER
     Route: 065
     Dates: start: 20060101

REACTIONS (2)
  - DRUG INTERACTION [None]
  - FEELING ABNORMAL [None]
